FAERS Safety Report 7492977-5 (Version None)
Quarter: 2011Q2

REPORT INFORMATION
  Report Type: 
  Country: None (occurrence: None)
  Receive Date: 20110520
  Receipt Date: 20110509
  Transmission Date: 20111010
  Serious: Yes (Other)
  Sender: FDA-Public Use
  Company Number: IT-JNJFOC-20110408921

PATIENT
  Age: 25 Year
  Sex: Male

DRUGS (5)
  1. HALDOL [Suspect]
     Indication: PRODUCT USED FOR UNKNOWN INDICATION
     Route: 048
     Dates: start: 20110420
  2. TRAZODONE HCL [Suspect]
     Route: 048
     Dates: start: 20110420
  3. TRAZODONE HCL [Suspect]
     Indication: PRODUCT USED FOR UNKNOWN INDICATION
     Route: 065
     Dates: start: 20110420
  4. MODURETIC 5-50 [Suspect]
     Indication: PRODUCT USED FOR UNKNOWN INDICATION
     Route: 065
     Dates: start: 20110420
  5. PRAMIPEXOLE DIHYCHLLORIDE [Suspect]
     Indication: PRODUCT USED FOR UNKNOWN INDICATION
     Route: 048
     Dates: start: 20110420

REACTIONS (4)
  - SLUGGISHNESS [None]
  - HYPOTENSION [None]
  - DRUG ABUSE [None]
  - VOMITING [None]
